FAERS Safety Report 6390407-8 (Version None)
Quarter: 2009Q4

REPORT INFORMATION
  Report Type: 
  Country: None (occurrence: None)
  Receive Date: 20091005
  Receipt Date: 20091005
  Transmission Date: 20100525
  Serious: No
  Sender: FDA-Public Use
  Company Number: None

PATIENT
  Age: 62 Year
  Sex: Male

DRUGS (1)
  1. AZATHIOPRINE [Suspect]
     Indication: CHRONIC INFLAMMATORY DEMYELINATING POLYRADICULONEUROPATHY
     Dosage: 75 MG BID PO
     Route: 048
     Dates: start: 20090604, end: 20090716

REACTIONS (4)
  - ANAEMIA [None]
  - DIZZINESS [None]
  - HYPOTENSION [None]
  - LEUKOPENIA [None]
